FAERS Safety Report 7162298-9 (Version None)
Quarter: 2010Q4

REPORT INFORMATION
  Report Type: 
  Country: None (occurrence: None)
  Receive Date: 20101215
  Receipt Date: 20101206
  Transmission Date: 20110411
  Serious: Yes (Hospitalization)
  Sender: FDA-Public Use
  Company Number: DE-ROCHE-746477

PATIENT
  Sex: Male
  Weight: 80 kg

DRUGS (10)
  1. BEVACIZUMAB [Suspect]
     Indication: NON-SMALL CELL LUNG CANCER
     Dosage: FORM: INFUSION. LAST DOSE PRIOR TO SAE: 25 NOVEMBER 2010.
     Route: 042
     Dates: start: 20101125
  2. PEMETREXED [Suspect]
     Indication: NON-SMALL CELL LUNG CANCER
     Dosage: FORM: INFUSION. LAST DOSE PRIOR TO SAE: 25 NOVEMBER 2010.
     Route: 042
     Dates: start: 20101125
  3. CARBOPLATIN [Suspect]
     Indication: NON-SMALL CELL LUNG CANCER
     Dosage: DOSE: AUC 5, FORM: INFUSION. LAST DOSE PRIOR TO SAE: 25 NOVEMBER 2010.
     Route: 042
     Dates: start: 20101125
  4. BISOPROLOL PLUS [Concomitant]
     Dosage: DOSE REPOTRTED: 10/25 MG.
     Dates: start: 20000101
  5. SIMVASTATIN [Concomitant]
     Dates: start: 20000101
  6. ALLOPURINOL [Concomitant]
     Dates: start: 20050101
  7. ASPIRIN [Concomitant]
     Dates: start: 20010101
  8. PENTAERYTHRITOL TETRANITRATE [Concomitant]
     Dates: start: 19800101
  9. CLEXANE [Concomitant]
     Dates: start: 20101101
  10. FOLSAN [Concomitant]
     Dates: start: 20101116

REACTIONS (1)
  - GENERAL PHYSICAL HEALTH DETERIORATION [None]
